FAERS Safety Report 8127030-0 (Version None)
Quarter: 2012Q1

REPORT INFORMATION
  Report Type: 
  Country: None (occurrence: None)
  Receive Date: 20120210
  Receipt Date: 20120209
  Transmission Date: 20120608
  Serious: Yes (Other)
  Sender: FDA-Public Use
  Company Number: US-BAYER-2012-013151

PATIENT
  Age: 34 Year
  Sex: Female

DRUGS (2)
  1. NAPROXEN [Concomitant]
  2. BETASERON [Suspect]
     Indication: MULTIPLE SCLEROSIS
     Dosage: 8 MIU, QOD
     Route: 058
     Dates: start: 20110819

REACTIONS (4)
  - ATRIAL FIBRILLATION [None]
  - CARDIOSPASM [None]
  - CHOKING [None]
  - DYSPHAGIA [None]
